FAERS Safety Report 9490668 (Version 1)
Quarter: 2013Q3

REPORT INFORMATION
  Report Type: Report from Study
  Country: CA (occurrence: CA)
  Receive Date: 20130830
  Receipt Date: 20130830
  Transmission Date: 20140515
  Serious: Yes (Other)
  Sender: FDA-Public Use
  Company Number: CA-JNJFOC-20130816510

PATIENT
  Age: 38 Year
  Sex: Male
  Weight: 99.79 kg

DRUGS (1)
  1. REMICADE [Suspect]
     Indication: ANKYLOSING SPONDYLITIS
     Route: 042
     Dates: start: 20100722

REACTIONS (3)
  - Cartilage injury [Unknown]
  - Ear infection [Recovered/Resolved]
  - Drug ineffective [Unknown]
